FAERS Safety Report 6550305-3 (Version None)
Quarter: 2010Q1

REPORT INFORMATION
  Report Type: 
  Country: None (occurrence: None)
  Receive Date: 20100125
  Receipt Date: 20100118
  Transmission Date: 20100710
  Serious: Yes (Other)
  Sender: FDA-Public Use
  Company Number: JP-PFIZER INC-2009182446

PATIENT
  Sex: Male

DRUGS (2)
  1. CORTRIL [Suspect]
     Dosage: UNK
     Route: 048
  2. SOLU-CORTEF [Suspect]
     Dosage: 100 MG/DAY
     Route: 042

REACTIONS (6)
  - CRANIOPHARYNGIOMA [None]
  - DIARRHOEA [None]
  - INCREASED APPETITE [None]
  - IRRITABILITY [None]
  - SUICIDAL IDEATION [None]
  - WEIGHT INCREASED [None]
